FAERS Safety Report 8365163-4 (Version None)
Quarter: 2012Q2

REPORT INFORMATION
  Report Type: 
  Country: None (occurrence: None)
  Receive Date: 20120516
  Receipt Date: 20120514
  Transmission Date: 20120825
  Serious: Yes (Hospitalization)
  Sender: FDA-Public Use
  Company Number: FR-PFIZER INC-2012116385

PATIENT
  Age: 34 Year
  Sex: Female

DRUGS (7)
  1. LOXAPINE HCL [Interacting]
     Dosage: 20 MG, 4X/DAY
     Route: 048
     Dates: end: 20120227
  2. MIRTAZAPINE [Concomitant]
     Dosage: 15 MG, 2X/DAY
     Route: 048
  3. QUETIAPINE [Interacting]
     Dosage: 300 MG, 1X/DAY
     Route: 048
  4. PRAMIPEXOLE DIHYDROCHLORIDE [Concomitant]
     Dosage: 0.18 MG, 12X/DAY
     Route: 048
  5. LITHIUM CARBONATE [Concomitant]
     Dosage: 400 MG, 2X/DAY
     Route: 048
  6. ZOLOFT [Suspect]
     Dosage: 50 MG, 4X/DAY
     Route: 048
     Dates: end: 20120227
  7. VALIUM [Concomitant]
     Dosage: 10 MG, 9X/DAY
     Route: 048

REACTIONS (2)
  - DRUG INTERACTION [None]
  - URINARY RETENTION [None]
